FAERS Safety Report 16192254 (Version 1)
Quarter: 2019Q2

REPORT INFORMATION
  Report Type: Report from Study
  Country: BR (occurrence: BR)
  Receive Date: 20190412
  Receipt Date: 20190412
  Transmission Date: 20190711
  Serious: Yes (Other)
  Sender: FDA-Public Use
  Company Number: PHHY2018BR015530

PATIENT
  Sex: Female

DRUGS (1)
  1. ACLASTA [Suspect]
     Active Substance: ZOLEDRONIC ACID
     Indication: OSTEOPOROSIS
     Dosage: 1 DF, Q12MO
     Route: 042
     Dates: start: 201703

REACTIONS (16)
  - Memory impairment [Unknown]
  - Sensitivity to weather change [Unknown]
  - Syncope [Unknown]
  - Spinal column injury [Unknown]
  - Vision blurred [Unknown]
  - Decreased appetite [Unknown]
  - Rotator cuff syndrome [Unknown]
  - Gastrointestinal disorder [Unknown]
  - Head injury [Unknown]
  - Body height decreased [Unknown]
  - Pneumonia [Unknown]
  - Gait disturbance [Recovering/Resolving]
  - Eye pain [Unknown]
  - Abdominal pain [Unknown]
  - Influenza [Unknown]
  - Cough [Unknown]
